FAERS Safety Report 18479375 (Version 1)
Quarter: 2020Q4

REPORT INFORMATION
  Report Type: Spontaneous
  Country: CA (occurrence: CA)
  Receive Date: 20201109
  Receipt Date: 20201109
  Transmission Date: 20210114
  Serious: Yes (Hospitalization)
  Sender: FDA-Public Use
  Company Number: CA-STRIDES ARCOLAB LIMITED-2020SP013523

PATIENT
  Age: 48 Year
  Sex: Female

DRUGS (2)
  1. AMLODIPINE [Suspect]
     Active Substance: AMLODIPINE BESYLATE
     Indication: HYPERTENSION
     Dosage: INTENTIONAL INGESTION OF AMLODIPINE 252MG
     Route: 048
  2. PERINDOPRIL [Suspect]
     Active Substance: PERINDOPRIL
     Indication: HYPERTENSION
     Dosage: INTENTIONAL INGESTION OF PERINDOPRIL 180MG
     Route: 048

REACTIONS (5)
  - Insulin resistance [Recovered/Resolved]
  - Intentional overdose [Unknown]
  - Toxicity to various agents [Unknown]
  - Hypoxia [Recovered/Resolved]
  - Vasoplegia syndrome [Unknown]
